FAERS Safety Report 12919512 (Version 1)
Quarter: 2016Q4

REPORT INFORMATION
  Report Type: Spontaneous
  Country: US (occurrence: US)
  Receive Date: 20161107
  Receipt Date: 20161107
  Transmission Date: 20170207
  Serious: Yes (Other)
  Sender: FDA-Public Use
  Company Number: US-GLAXOSMITHKLINE-US2016161789

PATIENT
  Sex: Female

DRUGS (1)
  1. EXCEDRIN [Suspect]
     Active Substance: ACETAMINOPHEN\ASPIRIN\CAFFEINE
     Indication: HEMIPLEGIC MIGRAINE
     Dosage: UNK

REACTIONS (4)
  - Gastritis erosive [Unknown]
  - Therapeutic response unexpected [Unknown]
  - Gastric haemorrhage [Unknown]
  - Intentional product use issue [Unknown]
